APPROVED DRUG PRODUCT: MUCINEX
Active Ingredient: GUAIFENESIN
Strength: 1.2GM
Dosage Form/Route: TABLET, EXTENDED RELEASE;ORAL
Application: N021282 | Product #002
Applicant: RB HEALTH US LLC
Approved: Dec 18, 2002 | RLD: Yes | RS: Yes | Type: OTC